FAERS Safety Report 25421592 (Version 1)
Quarter: 2025Q2

REPORT INFORMATION
  Report Type: Report from Study
  Country: AU (occurrence: AU)
  Receive Date: 20250611
  Receipt Date: 20250611
  Transmission Date: 20250716
  Serious: Yes (Disabling)
  Sender: SAMSUNG BIOEPIS
  Company Number: AU-SAMSUNG BIOEPIS-SB-2025-19703

PATIENT
  Age: 58 Year
  Sex: Female

DRUGS (1)
  1. HADLIMA [Suspect]
     Active Substance: ADALIMUMAB-BWWD
     Indication: Rheumatoid arthritis
     Dosage: 40MG/0.4ML;
     Dates: start: 20241121, end: 20250421

REACTIONS (4)
  - Swelling face [Recovered/Resolved]
  - Periorbital swelling [Recovered/Resolved]
  - Rash erythematous [Recovered/Resolved]
  - Device colour issue [Unknown]

NARRATIVE: CASE EVENT DATE: 20250315
